FAERS Safety Report 25102572 (Version 1)
Quarter: 2025Q1

REPORT INFORMATION
  Report Type: Spontaneous
  Country: US (occurrence: US)
  Receive Date: 20250321
  Receipt Date: 20250321
  Transmission Date: 20250409
  Serious: Yes (Other)
  Sender: NOVO NORDISK
  Company Number: US-NOVOPROD-1389534

PATIENT
  Age: 56 Year

DRUGS (2)
  1. WEGOVY [Suspect]
     Active Substance: SEMAGLUTIDE
     Indication: Weight control
     Dosage: 2.4 MG, QW
     Route: 058
     Dates: start: 20240215
  2. WEGOVY [Suspect]
     Active Substance: SEMAGLUTIDE
     Indication: Weight control
     Dates: start: 20230406

REACTIONS (2)
  - Thyroidectomy [Unknown]
  - Papillary thyroid cancer [Unknown]

NARRATIVE: CASE EVENT DATE: 20240619
